FAERS Safety Report 16186743 (Version 1)
Quarter: 2019Q2

REPORT INFORMATION
  Report Type: Spontaneous
  Country: FR (occurrence: FR)
  Receive Date: 20190411
  Receipt Date: 20190411
  Transmission Date: 20190711
  Serious: Yes (Hospitalization)
  Sender: FDA-Public Use
  Company Number: FR-PFIZER INC-2019152380

PATIENT
  Age: 46 Year
  Sex: Female
  Weight: 75 kg

DRUGS (1)
  1. RELPAX [Suspect]
     Active Substance: ELETRIPTAN HYDROBROMIDE
     Indication: MIGRAINE
     Dosage: 1 DF, SINGLE
     Route: 048
     Dates: start: 20190105, end: 20190105

REACTIONS (3)
  - Palpitations [Not Recovered/Not Resolved]
  - Dyspnoea [Not Recovered/Not Resolved]
  - Dizziness [Not Recovered/Not Resolved]

NARRATIVE: CASE EVENT DATE: 20190105
